FAERS Safety Report 9521029 (Version 1)
Quarter: 2013Q3

REPORT INFORMATION
  Report Type: Spontaneous
  Country: US (occurrence: US)
  Receive Date: 20130913
  Receipt Date: 20130913
  Transmission Date: 20140515
  Serious: Yes (Hospitalization)
  Sender: FDA-Public Use
  Company Number: US-ASTRAZENECA-2013SE67971

PATIENT
  Age: 50 Year
  Sex: Male
  Weight: 30.8 kg

DRUGS (10)
  1. BRILINTA [Suspect]
     Indication: MYOCARDIAL INFARCTION
     Route: 048
     Dates: start: 20130516, end: 20130905
  2. ASPIRIN [Concomitant]
     Route: 048
     Dates: end: 20130905
  3. COUMADIN [Concomitant]
     Indication: MYOCARDIAL INFARCTION
     Dosage: VARIED DOSES, STARTED DAILY, THEN WENT TO 2 TABS EVERY OTHER DAY, THEN DAILY, AND 1 TAB BID DAILY
     Route: 048
     Dates: start: 20130516, end: 20130905
  4. METFORMIN [Concomitant]
     Indication: DIABETES MELLITUS
     Route: 048
  5. FENOFIBRATE [Concomitant]
     Route: 048
  6. ATORVASTATIN [Concomitant]
     Route: 048
  7. GLIPIZIDE [Concomitant]
     Indication: DIABETES MELLITUS
     Route: 048
  8. PANTOPROZOLE [Concomitant]
     Dosage: 1 TAB AFTER 4 PM DAILY
     Route: 048
     Dates: start: 20130516
  9. MAGNESIUM [Concomitant]
     Route: 048
     Dates: start: 20130516
  10. CARVEDILOL [Concomitant]
     Route: 048
     Dates: start: 20130516

REACTIONS (2)
  - Anaemia [Unknown]
  - Rectal haemorrhage [Unknown]
